FAERS Safety Report 20495692 (Version 1)
Quarter: 2022Q1

REPORT INFORMATION
  Report Type: Spontaneous
  Country: US (occurrence: US)
  Receive Date: 20220221
  Receipt Date: 20220221
  Transmission Date: 20220424
  Serious: Yes (Hospitalization, Disabling, Other)
  Sender: FDA-Public Use
  Company Number: US-ORGANON-1412USA010348

PATIENT
  Sex: Female
  Weight: 76.19 kg

DRUGS (10)
  1. FOSAMAX [Suspect]
     Active Substance: ALENDRONATE SODIUM
     Indication: Osteoporosis
     Dosage: 70 MG, QW
     Route: 048
     Dates: start: 200611, end: 2013
  2. ALENDRONATE SODIUM [Suspect]
     Active Substance: ALENDRONATE SODIUM
     Indication: Osteoporosis prophylaxis
     Dosage: 70 MG, QW
     Route: 048
     Dates: start: 2006, end: 2013
  3. MINERALS\VITAMINS [Concomitant]
     Active Substance: MINERALS\VITAMINS
     Indication: Routine health maintenance
     Dosage: 1 DF, QD
     Route: 048
     Dates: start: 1963
  4. CALCIUM [Concomitant]
     Active Substance: CALCIUM
     Indication: Routine health maintenance
     Dosage: 1000 MG, QD
     Route: 048
     Dates: start: 1963
  5. VITAMIN D NOS [Concomitant]
     Active Substance: VITAMIN D NOS
     Indication: Routine health maintenance
     Dosage: 500 MG, QD
     Route: 048
     Dates: start: 1963
  6. TOCOPHEROL [Concomitant]
     Active Substance: TOCOPHEROL
     Indication: Routine health maintenance
     Dosage: 400 MG, QD
     Route: 048
     Dates: start: 1963
  7. ASCORBIC ACID [Concomitant]
     Active Substance: ASCORBIC ACID
     Indication: Routine health maintenance
     Dosage: 500 MG, QD
     Route: 048
     Dates: start: 1963
  8. OMEGA-3-ACID ETHYL ESTERS [Concomitant]
     Active Substance: OMEGA-3-ACID ETHYL ESTERS
     Indication: Routine health maintenance
     Dosage: 1000 MG, QD
     Route: 048
     Dates: start: 1963
  9. SYNTHROID [Concomitant]
     Active Substance: LEVOTHYROXINE SODIUM
     Dosage: 112 MICROGRAM
     Dates: start: 2005
  10. ALPRAZOLAM [Concomitant]
     Active Substance: ALPRAZOLAM
     Dosage: .25 MG
     Dates: start: 2006

REACTIONS (26)
  - Osteoarthritis [Unknown]
  - Fall [Unknown]
  - Open reduction of fracture [Unknown]
  - Pain [Unknown]
  - Arthropathy [Unknown]
  - Diverticulitis [Unknown]
  - Diverticulitis [Recovering/Resolving]
  - Osteoarthritis [Unknown]
  - Osteoarthritis [Unknown]
  - Device loosening [Unknown]
  - Femur fracture [Not Recovered/Not Resolved]
  - Depression [Not Recovered/Not Resolved]
  - Anxiety [Not Recovered/Not Resolved]
  - Uterine disorder [Unknown]
  - Musculoskeletal stiffness [Unknown]
  - Varicose vein [Unknown]
  - Bronchitis [Unknown]
  - Post procedural complication [Unknown]
  - Arthropathy [Unknown]
  - Vulvovaginal mycotic infection [Not Recovered/Not Resolved]
  - Asthma [Unknown]
  - Muscular weakness [Unknown]
  - Pain in extremity [Unknown]
  - Myalgia [Unknown]
  - Arthralgia [Unknown]
  - Gastritis [Unknown]

NARRATIVE: CASE EVENT DATE: 20061101
